FAERS Safety Report 5335562-3 (Version None)
Quarter: 2007Q2

REPORT INFORMATION
  Report Type: 
  Country: None (occurrence: None)
  Receive Date: 20070522
  Receipt Date: 20070510
  Transmission Date: 20071010
  Serious: Yes (Hospitalization)
  Sender: FDA-Public Use
  Company Number: 2007BI000906

PATIENT
  Age: 66 Year
  Sex: Male

DRUGS (2)
  1. AVONEX [Suspect]
     Indication: MULTIPLE SCLEROSIS
     Dosage: 30 UG;QW;IM
     Route: 030
     Dates: start: 20000801, end: 20030101
  2. AVONEX [Suspect]
     Indication: MULTIPLE SCLEROSIS
     Dosage: 30 UG;QW;IM
     Route: 030
     Dates: start: 20030101

REACTIONS (8)
  - ABDOMINAL ABSCESS [None]
  - BACTERIAL SEPSIS [None]
  - COLON CANCER [None]
  - CORONARY ARTERY DISEASE [None]
  - METASTASES TO LYMPH NODES [None]
  - MYOCARDIAL INFARCTION [None]
  - PAIN [None]
  - SMALL INTESTINAL OBSTRUCTION [None]
